FAERS Safety Report 22247461 (Version 2)
Quarter: 2023Q2

REPORT INFORMATION
  Report Type: Spontaneous
  Country: BR (occurrence: BR)
  Receive Date: 20230425
  Receipt Date: 20230504
  Transmission Date: 20230722
  Serious: Yes (Other)
  Sender: FDA-Public Use
  Company Number: BR-002147023-NVSC2023BR076254

PATIENT
  Sex: Female

DRUGS (11)
  1. TRAVATAN [Suspect]
     Active Substance: TRAVOPROST
     Indication: Glaucoma
     Dosage: 1 DRP, QD (IN BOTH EYES) (SHE WAS UNABLE TO INFORM (AFTER THE START OF DUOTRAVATAN)
     Route: 047
  2. TIMOLOL MALEATE\TRAVOPROST [Suspect]
     Active Substance: TIMOLOL MALEATE\TRAVOPROST
     Indication: Glaucoma
     Dosage: 1 DRP, QD (IN BOTH EYES) (START DATE: 9 YEARS AGO)
     Route: 047
  3. AMLODIPINE BESYLATE [Suspect]
     Active Substance: AMLODIPINE BESYLATE
     Indication: Glaucoma
     Dosage: 1 DOSAGE FORM, BID (START DATE: SHE WAS UNABLE TO INFORM OR ESTIMATE TIME)
     Route: 048
  4. AMLODIPINE BESYLATE [Suspect]
     Active Substance: AMLODIPINE BESYLATE
     Indication: Hypertension
  5. XALATAN [Concomitant]
     Active Substance: LATANOPROST
     Indication: Product used for unknown indication
     Dosage: UNK
     Route: 065
  6. LUMIGAN [Concomitant]
     Active Substance: BIMATOPROST
     Indication: Product used for unknown indication
     Dosage: UNK
     Route: 065
  7. OCUPRESS [Concomitant]
     Active Substance: CARTEOLOL HYDROCHLORIDE
     Indication: Glaucoma
     Dosage: 1 DRP, BID (IN BOTH EYES) (START DATE: SHE WAS UNABLE TO INFORM OR ESTIMATE TIME)
     Route: 047
  8. LOSARTAN POTASSIUM [Concomitant]
     Active Substance: LOSARTAN POTASSIUM
     Indication: Glaucoma
     Dosage: 1 DOSAGE FORM, BID (START DATE: SHE WAS UNABLE TO INFORM OR ESTIMATE TIME)
     Route: 048
  9. LOSARTAN POTASSIUM [Concomitant]
     Active Substance: LOSARTAN POTASSIUM
     Indication: Hypertension
  10. BRIMONIDINE TARTRATE [Concomitant]
     Active Substance: BRIMONIDINE TARTRATE
     Indication: Glaucoma
     Dosage: UNK
     Route: 065
  11. BRIMONIDINE TARTRATE [Concomitant]
     Active Substance: BRIMONIDINE TARTRATE
     Dosage: 1 DRP, BID (IN BOTH EYES) (START DATE: SHE WAS UNABLE TO INFORM OR ESTIMATE TIME)
     Route: 047

REACTIONS (5)
  - Eye irritation [Recovered/Resolved]
  - Eye pain [Recovered/Resolved]
  - Drug ineffective [Recovered/Resolved]
  - Glucose tolerance impaired [Not Recovered/Not Resolved]
  - Product use in unapproved indication [Unknown]
